FAERS Safety Report 5941330-1 (Version None)
Quarter: 2008Q4

REPORT INFORMATION
  Report Type: 
  Country: None (occurrence: None)
  Receive Date: 20081105
  Receipt Date: 20081024
  Transmission Date: 20090506
  Serious: Yes (Life-Threatening, Hospitalization)
  Sender: FDA-Public Use
  Company Number: EMADSS2003000899

PATIENT
  Age: 47 Year
  Sex: Male

DRUGS (3)
  1. REMICADE [Suspect]
     Route: 041
     Dates: start: 20021009
  2. REMICADE [Suspect]
     Indication: ANKYLOSING SPONDYLITIS
     Route: 041
     Dates: start: 20021009
  3. METHOTREXATE [Concomitant]
     Indication: ANKYLOSING SPONDYLITIS
     Route: 065
     Dates: start: 20021001

REACTIONS (2)
  - LISTERIOSIS [None]
  - MENINGITIS BACTERIAL [None]
